FAERS Safety Report 5219881-7 (Version None)
Quarter: 2007Q1

REPORT INFORMATION
  Report Type: 
  Country: None (occurrence: None)
  Receive Date: 20070125
  Receipt Date: 20070118
  Transmission Date: 20070707
  Serious: Yes (Hospitalization)
  Sender: FDA-Public Use
  Company Number: US-JNJFOC-20070104709

PATIENT
  Sex: Female
  Weight: 77.57 kg

DRUGS (16)
  1. INFLIXIMAB [Suspect]
     Indication: RHEUMATOID ARTHRITIS
  2. METHOTREXATE [Concomitant]
  3. ALLEGRA [Concomitant]
     Dosage: AS NEEDED
  4. ROZEREM [Concomitant]
  5. HYDROCODONE BITARTRATE [Concomitant]
     Dosage: 7.5/750 4 TABS DAILY
  6. ALTACE [Concomitant]
  7. TOPROL-XL [Concomitant]
  8. FOLBEE [Concomitant]
  9. CLOPIDOGREL [Concomitant]
  10. LIPITOR [Concomitant]
  11. NEXIUM [Concomitant]
  12. GABAPENTIN [Concomitant]
  13. ASPIRIN [Concomitant]
  14. MULTI-VITAMIN [Concomitant]
  15. CALTRATE [Concomitant]
  16. LIDODERM [Concomitant]

REACTIONS (5)
  - ABDOMINAL PAIN [None]
  - DIARRHOEA [None]
  - HYPOKALAEMIA [None]
  - NAUSEA [None]
  - VOMITING [None]
